FAERS Safety Report 20329433 (Version 6)
Quarter: 2022Q2

REPORT INFORMATION
  Report Type: Spontaneous
  Country: US (occurrence: US)
  Receive Date: 20220112
  Receipt Date: 20220421
  Transmission Date: 20220720
  Serious: Yes (Hospitalization, Other)
  Sender: FDA-Public Use
  Company Number: US-PFIZER INC-202101798960

PATIENT
  Age: 75 Year
  Sex: Female

DRUGS (1)
  1. IBRANCE [Suspect]
     Active Substance: PALBOCICLIB
     Indication: Breast cancer female
     Dosage: 100 MG
     Dates: start: 20211029

REACTIONS (21)
  - Palpitations [Unknown]
  - Hypotension [Unknown]
  - Dyspnoea [Unknown]
  - Syncope [Unknown]
  - Fibroma [Unknown]
  - Epistaxis [Recovered/Resolved]
  - Asthenia [Unknown]
  - Myalgia [Unknown]
  - Bone disorder [Unknown]
  - Fatigue [Not Recovered/Not Resolved]
  - Weight decreased [Unknown]
  - Hunger [Unknown]
  - Alopecia [Unknown]
  - White blood cell count decreased [Unknown]
  - Hypoaesthesia [Unknown]
  - Carpal tunnel syndrome [Unknown]
  - Decreased appetite [Unknown]
  - Illness [Not Recovered/Not Resolved]
  - Nausea [Unknown]
  - Urinary tract infection [Unknown]
  - Product dose omission issue [Unknown]

NARRATIVE: CASE EVENT DATE: 20210101
